FAERS Safety Report 19451912 (Version 4)
Quarter: 2022Q1

REPORT INFORMATION
  Report Type: Spontaneous
  Country: US (occurrence: US)
  Receive Date: 20210623
  Receipt Date: 20220214
  Transmission Date: 20220423
  Serious: Yes (Death, Other)
  Sender: FDA-Public Use
  Company Number: US-AMGEN-USASP2021094121

PATIENT
  Age: 68 Year
  Sex: Female

DRUGS (1)
  1. REPATHA [Suspect]
     Active Substance: EVOLOCUMAB
     Indication: Product used for unknown indication
     Dosage: 140 MILLIGRAM PER MILLILITRE, Q2WK
     Route: 065

REACTIONS (5)
  - Renal failure [Fatal]
  - Myocardial infarction [Fatal]
  - Diabetes mellitus [Fatal]
  - Hip fracture [Unknown]
  - Seizure [Unknown]

NARRATIVE: CASE EVENT DATE: 20200101
